FAERS Safety Report 8275735-3 (Version None)
Quarter: 2012Q2

REPORT INFORMATION
  Report Type: 
  Country: None (occurrence: None)
  Receive Date: 20120412
  Receipt Date: 20120402
  Transmission Date: 20120825
  Serious: Yes (Hospitalization)
  Sender: FDA-Public Use
  Company Number: FR-PAR PHARMACEUTICAL, INC-2012SCPR004303

PATIENT

DRUGS (8)
  1. BUPRENORPHINE [Concomitant]
     Indication: PRODUCT USED FOR UNKNOWN INDICATION
     Dosage: 12 MG, / DAY
     Route: 065
  2. OLANZAPINE [Suspect]
     Indication: MENTAL DISORDER
     Dosage: UNK, UNKNOWN
     Route: 065
  3. ACETAMINOPHEN [Concomitant]
     Indication: PRODUCT USED FOR UNKNOWN INDICATION
     Dosage: UNK, UNKNOWN
     Route: 065
  4. OFLOXACIN [Concomitant]
     Indication: PROSTATITIS
     Dosage: UNK, UNKNOWN
     Route: 065
  5. CLONAZEPAM [Concomitant]
     Indication: PRODUCT USED FOR UNKNOWN INDICATION
     Dosage: UNK, UNKNOWN
     Route: 065
  6. OLANZAPINE [Suspect]
     Dosage: 30% IN PETROLATUM FOR PATCH TEST
     Route: 061
  7. INTERFERON [Concomitant]
     Indication: HEPATITIS C
     Dosage: UNK, UNKNOWN
     Route: 065
  8. RIBAVIRIN [Concomitant]
     Indication: HEPATITIS C
     Dosage: UNK, UNKNOWN
     Route: 065

REACTIONS (1)
  - DRUG RASH WITH EOSINOPHILIA AND SYSTEMIC SYMPTOMS [None]
